FAERS Safety Report 4459222-6 (Version None)
Quarter: 2004Q3

REPORT INFORMATION
  Report Type: 
  Country: None (occurrence: None)
  Receive Date: 20040923
  Receipt Date: 20040913
  Transmission Date: 20050211
  Serious: Yes (Other)
  Sender: FDA-Public Use
  Company Number: 2004UW18585

PATIENT
  Age: 61 Year
  Sex: Female

DRUGS (11)
  1. CRESTOR [Suspect]
     Indication: HYPERCHOLESTEROLAEMIA
     Dosage: 20 MG OR 40 MG
     Dates: start: 20040624, end: 20040901
  2. INSULIN [Concomitant]
  3. NEURONTIN [Concomitant]
  4. ISOSORBIDE DINITRATE [Concomitant]
  5. TRAZODONE HCL [Concomitant]
  6. IRON [Concomitant]
  7. HYTRIN [Concomitant]
  8. ZETIA [Concomitant]
  9. ZAROXOLYN [Concomitant]
  10. CLONIDINE HCL [Concomitant]
  11. NORVASC [Concomitant]

REACTIONS (2)
  - BLOOD CREATINE PHOSPHOKINASE INCREASED [None]
  - MYOSITIS [None]
